FAERS Safety Report 4835571-4 (Version None)
Quarter: 2005Q4

REPORT INFORMATION
  Report Type: 
  Country: None (occurrence: None)
  Receive Date: 20051123
  Receipt Date: 20051110
  Transmission Date: 20060501
  Serious: Yes (Hospitalization)
  Sender: FDA-Public Use
  Company Number: FR-BOEHRINGER INGELHEIM PHARMACEUTICALS, INC.-2005-DE-05099GL

PATIENT
  Age: 76 Year
  Sex: Female

DRUGS (10)
  1. TELMISARTAN [Suspect]
     Indication: ESSENTIAL HYPERTENSION
     Route: 048
  2. THYROXINE SODIUM [Suspect]
     Indication: HYPOTHYROIDISM
     Route: 048
  3. GINKGO BILOBA [Suspect]
     Dosage: 3 UNIT
     Route: 048
     Dates: end: 20041030
  4. FLUOXETINE HYDROCHLORIDE [Suspect]
     Indication: DEPRESSION
     Dosage: NOT APPLICABLE
     Route: 048
     Dates: end: 20041104
  5. NITROGLYCERIN [Suspect]
     Indication: ISCHAEMIC CARDIOMYOPATHY
     Dosage: ROUTE: PATCH
  6. PHENOBARBITONE [Suspect]
     Indication: THYROIDITIS
     Route: 048
  7. LYSINE ASPIRIN [Concomitant]
  8. BAMBUTEROL [Concomitant]
  9. SYMBICORT [Concomitant]
  10. PROCYANIDOLIC OLIGOMER [Concomitant]

REACTIONS (6)
  - ARTHRALGIA [None]
  - ERYTHROMELALGIA [None]
  - INFLAMMATION [None]
  - LEUKOCYTOCLASTIC VASCULITIS [None]
  - PALPABLE PURPURA [None]
  - PURPURA [None]
